FAERS Safety Report 5195977-3 (Version None)
Quarter: 2006Q4

REPORT INFORMATION
  Report Type: 
  Country: None (occurrence: None)
  Receive Date: 20061227
  Receipt Date: 20061227
  Transmission Date: 20070319
  Serious: Yes (Death, Hospitalization)
  Sender: FDA-Public Use
  Company Number: None

PATIENT
  Age: 47 Year
  Sex: Male

DRUGS (4)
  1. ASPIRIN [Suspect]
  2. CLOPIDOGREL [Suspect]
  3. PHENYTOIN SODIUM CAP [Concomitant]
  4. SIMVASTATIN [Concomitant]

REACTIONS (2)
  - FALL [None]
  - SUBDURAL HAEMORRHAGE [None]
